FAERS Safety Report 4381977-X (Version None)
Quarter: 2004Q2

REPORT INFORMATION
  Report Type: 
  Country: None (occurrence: None)
  Receive Date: 20040615
  Receipt Date: 20040602
  Transmission Date: 20050107
  Serious: Yes (Death, Hospitalization)
  Sender: FDA-Public Use
  Company Number: WAES 0309USA03266

PATIENT
  Age: 74 Year
  Sex: Male

DRUGS (5)
  1. ZOCOR [Suspect]
     Indication: HYPERLIPIDAEMIA
     Dosage: 5 MG/DAILY
     Route: 048
     Dates: start: 19921015, end: 20020107
  2. AMBROXOL HYDROCHLORIDE [Concomitant]
  3. GLYBURIDE [Concomitant]
  4. PIOGLITAZONE HCL [Concomitant]
  5. PIRMENOL [Concomitant]

REACTIONS (1)
  - RESPIRATORY FAILURE [None]
